FAERS Safety Report 8014409 (Version 3)
Quarter: 2013Q1

REPORT INFORMATION
  Report Type: Spontaneous
  Country: BR (occurrence: BR)
  Receive Date: 20110629
  Receipt Date: 20130326
  Transmission Date: 20140127
  Serious: Yes (Hospitalization, Other)
  Sender: FDA-Public Use
  Company Number: BR-ELI_LILLY_AND_COMPANY-BR201106005076

PATIENT
  Age: 71 Year
  Sex: Female
  Weight: 38 kg

DRUGS (6)
  1. FORTEO [Suspect]
     Indication: OSTEOPOROSIS
     Dosage: UNK, QD
     Route: 065
     Dates: start: 200908
  2. FORTEO [Suspect]
     Dosage: UNK, OTHER
     Route: 065
  3. DIPIRONA [Concomitant]
     Indication: PAIN
     Dosage: UNK
     Route: 065
  4. ANADOR [Concomitant]
     Indication: PAIN
     Dosage: UNK
     Route: 065
  5. TYLENOL                                 /SCH/ [Concomitant]
     Indication: PAIN
     Dosage: UNK
     Route: 065
  6. NORIPURUM [Concomitant]
     Dosage: UNK
     Route: 065

REACTIONS (17)
  - Syncope [Unknown]
  - Weight decreased [Not Recovered/Not Resolved]
  - Eating disorder [Unknown]
  - Dysphagia [Not Recovered/Not Resolved]
  - Pharyngeal mass [Unknown]
  - Mental disorder [Unknown]
  - Diarrhoea [Unknown]
  - Drug dose omission [Unknown]
  - Cheilitis [Not Recovered/Not Resolved]
  - Oropharyngeal discomfort [Unknown]
  - Dry mouth [Not Recovered/Not Resolved]
  - Gastrooesophageal reflux disease [Not Recovered/Not Resolved]
  - Oesophageal achalasia [Not Recovered/Not Resolved]
  - Barrett^s oesophagus [Not Recovered/Not Resolved]
  - Candida infection [Not Recovered/Not Resolved]
  - Asthenia [Not Recovered/Not Resolved]
  - Anaemia [Not Recovered/Not Resolved]
